FAERS Safety Report 6983665-X (Version None)
Quarter: 2010Q3

REPORT INFORMATION
  Report Type: 
  Country: None (occurrence: None)
  Receive Date: 20100914
  Receipt Date: 20081223
  Transmission Date: 20110219
  Serious: No
  Sender: FDA-Public Use
  Company Number: US-WYE-H07008408

PATIENT
  Age: 75 Year
  Sex: Male

DRUGS (2)
  1. ADVIL LIQUI-GELS [Suspect]
     Indication: NECK PAIN
     Dosage: 4 OR 6 TABLETS PER DAY
     Route: 048
     Dates: start: 20081101
  2. WARFARIN SODIUM [Concomitant]

REACTIONS (2)
  - EPISTAXIS [None]
  - PROTHROMBIN TIME PROLONGED [None]
